FAERS Safety Report 8957003 (Version 1)
Quarter: 2012Q4

REPORT INFORMATION
  Report Type: 
  Country: JP (occurrence: JP)
  Receive Date: 20121210
  Receipt Date: 20121210
  Transmission Date: 20130627
  Serious: Yes (Death)
  Sender: FDA-Public Use
  Company Number: JP-ROCHE-1098423

PATIENT
  Age: 65 Year
  Sex: Male

DRUGS (5)
  1. ACTIVACIN [Suspect]
     Indication: EMBOLIC STROKE
     Route: 042
     Dates: start: 20110412, end: 20110412
  2. RADICUT [Concomitant]
     Indication: EMBOLIC STROKE
     Route: 041
     Dates: start: 20110412, end: 20110416
  3. WARFARIN [Concomitant]
     Indication: EMBOLIC STROKE
     Route: 048
     Dates: start: 20110412
  4. GLYCEOL [Concomitant]
     Indication: EMBOLIC STROKE
     Route: 065
     Dates: start: 20110413, end: 20110418
  5. D-MANNITOL [Concomitant]
     Indication: EMBOLIC STROKE
     Route: 041
     Dates: start: 20110414, end: 20110418

REACTIONS (3)
  - Brain herniation [Fatal]
  - Brain oedema [Fatal]
  - Cerebral infarction [Fatal]
